FAERS Safety Report 8602431-2 (Version None)
Quarter: 2012Q3

REPORT INFORMATION
  Report Type: 
  Country: None (occurrence: None)
  Receive Date: 20120817
  Receipt Date: 19950425
  Transmission Date: 20120928
  Serious: Yes (Other)
  Sender: FDA-Public Use
  Company Number: US-ROCHE-1101446

PATIENT
  Sex: Female

DRUGS (4)
  1. NITROGLYCERIN [Concomitant]
  2. HEPARIN [Concomitant]
  3. VALIUM [Concomitant]
  4. ACTIVASE [Suspect]
     Indication: ACUTE MYOCARDIAL INFARCTION

REACTIONS (3)
  - NAUSEA [None]
  - MUSCLE SPASMS [None]
  - FATIGUE [None]
